FAERS Safety Report 13436756 (Version 1)
Quarter: 2017Q2

REPORT INFORMATION
  Report Type: Spontaneous
  Country: US (occurrence: US)
  Receive Date: 20170412
  Receipt Date: 20170412
  Transmission Date: 20170830
  Serious: No
  Sender: FDA-Public Use
  Company Number: US-SA-2016SA168137

PATIENT
  Age: 46 Year
  Sex: Female

DRUGS (3)
  1. ALLEGRA ALLERGY [Suspect]
     Active Substance: FEXOFENADINE HYDROCHLORIDE
     Indication: MASTOCYTOSIS
     Dosage: TAKING ALLEGRA 5 YEARS AGO, MORE THAN ONE TIME DAILY?AS DIRECTED BY HER PHYSICIAN (FREQUENCY VARIES)
     Route: 048
  2. METFORMIN [Concomitant]
     Active Substance: METFORMIN HYDROCHLORIDE
     Dosage: 1500 (UNIT UNSPECIFIED)
     Route: 065
  3. METFORMIN [Concomitant]
     Active Substance: METFORMIN HYDROCHLORIDE
     Dosage: 250 (UNIT UNSPECIFIED)
     Route: 065

REACTIONS (2)
  - Palpitations [Unknown]
  - Feeling abnormal [Unknown]
